FAERS Safety Report 4523598-1 (Version None)
Quarter: 2004Q4

REPORT INFORMATION
  Report Type: 
  Country: None (occurrence: None)
  Receive Date: 20041117
  Receipt Date: 20040729
  Transmission Date: 20050328
  Serious: Yes (Hospitalization)
  Sender: FDA-Public Use
  Company Number: DE-JNJFOC-20040800339

PATIENT
  Age: 70 Year
  Sex: Female

DRUGS (28)
  1. LEVOFLOXACIN [Suspect]
     Indication: PNEUMONIA
     Dosage: INTRAVENOUS
     Route: 042
     Dates: start: 20031217, end: 20031225
  2. LEVOFLOXACIN [Suspect]
     Indication: PNEUMONIA
     Dosage: ORAL
     Route: 048
     Dates: start: 20031226, end: 20031231
  3. ZANTAC [Concomitant]
  4. COZAR (LOSARTAN POTASSIUM) [Concomitant]
  5. PLAVIX [Concomitant]
  6. ZOLOFT [Concomitant]
  7. NORVASC [Concomitant]
  8. LASIX [Concomitant]
  9. ALBUTEROL [Concomitant]
  10. ATROVENT [Concomitant]
  11. MUCINEX (ALL OTHER THERAPEUTIC PRODUCTS) [Concomitant]
  12. SOLU-MEDROL [Concomitant]
  13. PEPCID [Concomitant]
  14. HEPARIN [Concomitant]
  15. ACETYLSALICYLIC ACID SRT [Concomitant]
  16. NPH INSULIN [Concomitant]
  17. XOPENEX [Concomitant]
  18. VIOXX [Concomitant]
  19. CLARITIN [Concomitant]
  20. FLONASE [Concomitant]
  21. MS04 (MAGNESIUM SULFATE) [Concomitant]
  22. VASOTEC [Concomitant]
  23. PREDNISONE [Concomitant]
  24. INSULIN [Concomitant]
  25. TYLENOL [Concomitant]
  26. QUININE (QUININE) [Concomitant]
  27. ZOFRAN [Concomitant]
  28. ANTIVERT [Concomitant]

REACTIONS (1)
  - PNEUMONIA [None]
